FAERS Safety Report 12850680 (Version 1)
Quarter: 2016Q4

REPORT INFORMATION
  Report Type: Other
  Country: None (occurrence: TR)
  Receive Date: 20161014
  Receipt Date: 20161014
  Transmission Date: 20170207
  Serious: Yes (Death, Hospitalization, Other)
  Sender: FDA-Public Use
  Company Number: TR-VISTAPHARM, INC.-1058377

PATIENT
  Age: 59 Year
  Sex: Male

DRUGS (1)
  1. PHENYTOIN. [Suspect]
     Active Substance: PHENYTOIN
     Indication: GENERALISED TONIC-CLONIC SEIZURE

REACTIONS (1)
  - Toxic epidermal necrolysis [Fatal]
